FAERS Safety Report 10162669 (Version 1)
Quarter: 2014Q2

REPORT INFORMATION
  Report Type: Spontaneous
  Country: US (occurrence: US)
  Receive Date: 20140509
  Receipt Date: 20140509
  Transmission Date: 20141212
  Serious: Yes (Other)
  Sender: FDA-Public Use
  Company Number: US-SA-2014SA059341

PATIENT
  Sex: 0

DRUGS (1)
  1. CAMPATH [Suspect]
     Indication: PRODUCT USED FOR UNKNOWN INDICATION
     Dosage: ABOUT THREE YEARS AGO
     Route: 065

REACTIONS (3)
  - Autoimmune thyroiditis [Unknown]
  - Basedow^s disease [Unknown]
  - Off label use [Unknown]
